FAERS Safety Report 16999217 (Version 2)
Quarter: 2019Q4

REPORT INFORMATION
  Report Type: Spontaneous
  Country: AT (occurrence: AT)
  Receive Date: 20191106
  Receipt Date: 20191108
  Transmission Date: 20200122
  Serious: Yes (Hospitalization)
  Sender: FDA-Public Use
  Company Number: AT-TEVA-2019-AT-1132171

PATIENT
  Age: 40 Year
  Sex: Male

DRUGS (7)
  1. IRON SUCROSE [Suspect]
     Active Substance: IRON SUCROSE
     Indication: MICROCYTIC ANAEMIA
     Route: 041
  2. ADALIMUMAB [Concomitant]
     Active Substance: ADALIMUMAB
     Indication: CROHN^S DISEASE
     Dosage: AS MAINTENANCE THERAPY
     Route: 065
  3. CALCIUM [Concomitant]
     Active Substance: CALCIUM
     Indication: CROHN^S DISEASE
     Route: 065
  4. FERRIC CARBOXYMALTOSE [Suspect]
     Active Substance: FERRIC CARBOXYMALTOSE
     Indication: MICROCYTIC ANAEMIA
     Route: 041
  5. VITAMIN D [Concomitant]
     Active Substance: VITAMIN D NOS
     Indication: CROHN^S DISEASE
     Route: 065
  6. MESALAZINE [Concomitant]
     Active Substance: MESALAMINE
     Indication: CROHN^S DISEASE
     Dosage: AS MAINTENANCE THERAPY
     Route: 065
  7. ZOLEDRONIC ACID [Suspect]
     Active Substance: ZOLEDRONIC ACID
     Route: 065

REACTIONS (6)
  - Mobility decreased [Unknown]
  - Condition aggravated [Unknown]
  - Hypophosphataemia [Unknown]
  - Gait disturbance [Unknown]
  - Osteomalacia [Unknown]
  - Stress fracture [Unknown]
